FAERS Safety Report 25868665 (Version 2)
Quarter: 2025Q4

REPORT INFORMATION
  Report Type: Spontaneous
  Country: CN (occurrence: CN)
  Receive Date: 20251001
  Receipt Date: 20251016
  Transmission Date: 20260118
  Serious: Yes (Other)
  Sender: DAIICHI
  Company Number: CN-DSJP-DS-2025-166729-CN

PATIENT
  Age: 53 Year
  Sex: Female
  Weight: 62 kg

DRUGS (1)
  1. TRASTUZUMAB DERUXTECAN [Suspect]
     Active Substance: TRASTUZUMAB DERUXTECAN
     Indication: Breast cancer
     Dosage: 300 MG, QD
     Route: 041
     Dates: start: 20250822, end: 20250822

REACTIONS (1)
  - Suspected drug-induced liver injury [Unknown]

NARRATIVE: CASE EVENT DATE: 20250909
